FAERS Safety Report 21656581 (Version 8)
Quarter: 2024Q2

REPORT INFORMATION
  Report Type: Report from Study
  Country: MX (occurrence: MX)
  Receive Date: 20221129
  Receipt Date: 20240408
  Transmission Date: 20240715
  Serious: Yes (Other)
  Sender: FDA-Public Use
  Company Number: MX-002147023-NVSC2022MX276378

PATIENT
  Age: 45 Year
  Sex: Female
  Weight: 86 kg

DRUGS (7)
  1. KISQALI [Suspect]
     Active Substance: RIBOCICLIB
     Indication: Breast cancer
     Dosage: 600 MG, QD
     Route: 048
     Dates: start: 20211105
  2. KISQALI [Suspect]
     Active Substance: RIBOCICLIB
     Dosage: UNK
     Route: 048
     Dates: start: 20211116
  3. LETROZOLE [Suspect]
     Active Substance: LETROZOLE
     Indication: Breast cancer
     Dosage: 1 (2.5 MG), Q24H
     Route: 048
     Dates: start: 20211116
  4. LORAZEPAM [Concomitant]
     Active Substance: LORAZEPAM
     Indication: Insomnia
     Dosage: 1/4 (1 MG), Q24H
     Route: 048
     Dates: start: 20211116
  5. LORAZEPAM [Concomitant]
     Active Substance: LORAZEPAM
     Dosage: 1/4 (1 MG), Q24H
     Route: 048
     Dates: start: 20220208
  6. ACETAMINOPHEN [Concomitant]
     Active Substance: ACETAMINOPHEN
     Indication: Product used for unknown indication
     Dosage: 2 (500 MG), Q8H (ONLY IN CASE OF HEADACHE)
     Route: 048
     Dates: start: 20220307
  7. TRIMEBUTINE [Concomitant]
     Active Substance: TRIMEBUTINE
     Indication: Product used for unknown indication
     Dosage: 1 (200/ 75/ 45 MG), Q12H (ONLY IN CASE OF ABDOMINAL DISTENSION)
     Route: 048
     Dates: start: 20220725

REACTIONS (27)
  - Skin toxicity [Recovering/Resolving]
  - Urticaria [Recovering/Resolving]
  - Inflammation [Not Recovered/Not Resolved]
  - Pruritus [Not Recovered/Not Resolved]
  - Breast cancer recurrent [Unknown]
  - Dysphagia [Recovering/Resolving]
  - Glossitis [Unknown]
  - Pharyngeal swelling [Recovering/Resolving]
  - Mouth ulceration [Recovering/Resolving]
  - Tongue ulceration [Recovering/Resolving]
  - Pain in extremity [Not Recovered/Not Resolved]
  - Gastritis [Unknown]
  - Pain [Recovered/Resolved]
  - Musculoskeletal discomfort [Unknown]
  - Sciatica [Unknown]
  - Fatigue [Unknown]
  - Muscle contracture [Unknown]
  - Burning sensation [Unknown]
  - Paraesthesia [Unknown]
  - Pain [Unknown]
  - Dermatitis allergic [Unknown]
  - Toxicity to various agents [Unknown]
  - Stomatitis [Unknown]
  - Mucosal disorder [Unknown]
  - Sensitive skin [Unknown]
  - Urinary tract infection [Unknown]
  - Lung disorder [Unknown]

NARRATIVE: CASE EVENT DATE: 20211120
